FAERS Safety Report 6264805-7 (Version None)
Quarter: 2009Q3

REPORT INFORMATION
  Report Type: 
  Country: None (occurrence: None)
  Receive Date: 20090710
  Receipt Date: 20090702
  Transmission Date: 20100115
  Serious: Yes (Death)
  Sender: FDA-Public Use
  Company Number: US-GENENTECH-225814

PATIENT
  Sex: Male

DRUGS (4)
  1. BEVACIZUMAB [Suspect]
     Indication: PROSTATE CANCER
     Dosage: 15 MG/KG, Q3W
     Route: 042
     Dates: start: 20060215
  2. DEXAMETHASONE TAB [Suspect]
     Indication: PROSTATE CANCER
     Dosage: 8 MG, Q3W
     Route: 048
     Dates: start: 20060215
  3. DOCETAXEL [Suspect]
     Indication: PROSTATE CANCER
     Dosage: 75 MG/M2, Q3W
     Route: 042
     Dates: start: 20060215
  4. PREDNISONE TAB [Suspect]
     Indication: PROSTATE CANCER
     Dosage: 5 MG, BID
     Route: 048
     Dates: start: 20060215

REACTIONS (1)
  - SUDDEN DEATH [None]
